FAERS Safety Report 7728645-1 (Version None)
Quarter: 2011Q3

REPORT INFORMATION
  Report Type: 
  Country: None (occurrence: None)
  Receive Date: 20110831
  Receipt Date: 20110831
  Transmission Date: 20111222
  Serious: Yes (Hospitalization)
  Sender: FDA-Public Use
  Company Number: None

PATIENT
  Age: 49 Year
  Sex: Male
  Weight: 79.9 kg

DRUGS (1)
  1. ALLOPURINOL [Suspect]
     Indication: ACUTE MYELOID LEUKAEMIA
     Dosage: 300 MG AT BEDTIME PO
     Route: 048
     Dates: start: 20110706, end: 20110725

REACTIONS (5)
  - DRUG RASH WITH EOSINOPHILIA AND SYSTEMIC SYMPTOMS [None]
  - PYREXIA [None]
  - RASH ERYTHEMATOUS [None]
  - DRUG ERUPTION [None]
  - RENAL FAILURE ACUTE [None]
